FAERS Safety Report 19654455 (Version 3)
Quarter: 2025Q3

REPORT INFORMATION
  Report Type: Spontaneous
  Country: CA (occurrence: CA)
  Receive Date: 20210803
  Receipt Date: 20250903
  Transmission Date: 20251020
  Serious: Yes (Other)
  Sender: NOVARTIS
  Company Number: CA-NOVARTISPH-NVSC2021CA168327

PATIENT
  Sex: Female

DRUGS (11)
  1. LETROZOLE [Suspect]
     Active Substance: LETROZOLE
     Indication: Ovarian endometrioid carcinoma
     Route: 065
     Dates: start: 201508, end: 201903
  2. LETROZOLE [Suspect]
     Active Substance: LETROZOLE
     Route: 065
  3. PACLITAXEL [Suspect]
     Active Substance: PACLITAXEL
     Indication: Ovarian endometrioid carcinoma
     Route: 065
     Dates: start: 202103
  4. PACLITAXEL [Suspect]
     Active Substance: PACLITAXEL
     Route: 065
     Dates: start: 202104
  5. CARBOPLATIN [Suspect]
     Active Substance: CARBOPLATIN
     Indication: Ovarian endometrioid carcinoma
     Route: 065
     Dates: start: 202103
  6. CARBOPLATIN [Suspect]
     Active Substance: CARBOPLATIN
     Route: 065
     Dates: start: 202104
  7. CARBOPLATIN [Suspect]
     Active Substance: CARBOPLATIN
     Route: 065
  8. TAMOXIFEN [Suspect]
     Active Substance: TAMOXIFEN
     Indication: Ovarian endometrioid carcinoma
     Route: 065
     Dates: start: 202008
  9. MESTRANOL\NORETHINDRONE [Suspect]
     Active Substance: MESTRANOL\NORETHINDRONE
     Indication: Ovarian endometrioid carcinoma
     Route: 065
     Dates: start: 201907, end: 202003
  10. PALBOCICLIB [Suspect]
     Active Substance: PALBOCICLIB
     Indication: Ovarian endometrioid carcinoma
     Route: 065
  11. MEGESTROL [Suspect]
     Active Substance: MEGESTROL
     Indication: Ovarian endometrioid carcinoma
     Route: 065

REACTIONS (4)
  - Ovarian endometrioid carcinoma [Unknown]
  - Metastases to liver [Unknown]
  - Malignant neoplasm progression [Unknown]
  - Product use in unapproved indication [Unknown]
